FAERS Safety Report 6928705 (Version 20)
Quarter: 2013Q2

REPORT INFORMATION
  Report Type: Spontaneous
  Country: US (occurrence: US)
  Receive Date: 20090305
  Receipt Date: 20130614
  Transmission Date: 20140414
  Serious: Yes (Hospitalization, Other)
  Sender: FDA-Public Use
  Company Number: PHEH2009US02154

PATIENT
  Age: 51 Year
  Sex: Male
  Weight: 60 kg

DRUGS (50)
  1. AREDIA [Suspect]
     Route: 042
     Dates: start: 1995, end: 2004
  2. ZOMETA [Suspect]
     Route: 042
     Dates: start: 2004, end: 2004
  3. ZETIA [Concomitant]
  4. RETROVIR [Concomitant]
  5. EPIVIR [Concomitant]
  6. ZERIT [Concomitant]
  7. VIDEX [Concomitant]
  8. LIPITOR [Concomitant]
  9. TOPROL XL [Concomitant]
  10. RAMIPRIL [Concomitant]
  11. TRUVADA (EMTRICITABINE W/TENOFOVIR DISOPROXIL FUMARATE) [Concomitant]
  12. COUMADIN [Concomitant]
  13. DDI [Concomitant]
  14. DOXYCYCLINE [Concomitant]
  15. TOBRADEX [Concomitant]
  16. VELCADE [Concomitant]
  17. BACTRIM [Concomitant]
  18. VIREAD [Concomitant]
  19. KALETRA [Concomitant]
  20. SUSTRATE [Concomitant]
  21. THALIDOMID [Concomitant]
  22. PREZISTA (DARUNAVIR ETHANOLATE) [Concomitant]
  23. ISENTRESS [Concomitant]
  24. INTELENCE [Concomitant]
  25. NORVIR [Concomitant]
  26. DEBROX [Concomitant]
  27. REVLIMID [Concomitant]
     Dosage: 25 MG,
  28. VIRACEPT [Concomitant]
  29. SUSTIVA [Concomitant]
  30. MOTRIN [Concomitant]
  31. VINCRISTINE [Concomitant]
     Dates: end: 200109
  32. DEXAMETHASONE [Concomitant]
     Dates: end: 200109
  33. BIAXIN [Concomitant]
  34. FLUMADINE [Concomitant]
  35. DECADRON [Concomitant]
  36. ADRIAMYCIN [Concomitant]
     Dates: start: 200109
  37. COREG [Concomitant]
     Dosage: 6.25 MG, BID
     Route: 048
  38. ACYCLOVIR [Concomitant]
     Dosage: 800 MG, BID
     Route: 048
  39. ATIVAN [Concomitant]
     Dosage: 0.5 MG,
     Route: 048
  40. CIPRO [Concomitant]
     Dosage: 500 MG, BID
     Route: 048
  41. COMPAZINE [Concomitant]
     Dosage: 10 MG,
  42. DIFLUCAN [Concomitant]
     Dosage: 200 MG,
     Route: 048
  43. OMEPRAZOLE [Concomitant]
     Dosage: 20 MG,
     Route: 048
  44. OXYCODONE [Concomitant]
     Dosage: 5 MG,
     Route: 048
  45. RITONAVIR [Concomitant]
     Dosage: 100 MG,
     Route: 048
  46. ROCEPHIN [Concomitant]
  47. SODIUM CHLORIDE [Concomitant]
  48. ONDANSETRON [Concomitant]
     Dosage: 8 MG, QD
     Route: 048
  49. MELPHALAN [Concomitant]
  50. NEUPOGEN [Concomitant]
     Dosage: 480 UG,

REACTIONS (85)
  - Diabetic ketoacidosis [Recovering/Resolving]
  - Left ventricular hypertrophy [Unknown]
  - Left ventricular dysfunction [Unknown]
  - Ejection fraction decreased [Unknown]
  - Osteonecrosis of jaw [Unknown]
  - Hypoaesthesia [Unknown]
  - Gingival pain [Unknown]
  - Pain in jaw [Unknown]
  - Facial pain [Unknown]
  - Sinus tachycardia [Unknown]
  - Ventricular extrasystoles [Unknown]
  - Nephrolithiasis [Unknown]
  - Osteonecrosis [Unknown]
  - Trigger finger [Unknown]
  - Musculoskeletal pain [Unknown]
  - Patellofemoral pain syndrome [Unknown]
  - Muscle strain [Unknown]
  - Bursitis [Unknown]
  - Metastases to spine [Unknown]
  - Spinal compression fracture [Unknown]
  - Spinal disorder [Unknown]
  - Pelvic pain [Unknown]
  - Bone infarction [Unknown]
  - Bone lesion [Unknown]
  - Ligament sprain [Unknown]
  - Muscle spasms [Unknown]
  - Light chain analysis increased [Unknown]
  - Concomitant disease progression [Unknown]
  - Intervertebral disc degeneration [Unknown]
  - Hordeolum [Unknown]
  - Granulocytopenia [Unknown]
  - Metastases to bone [Unknown]
  - Spinal osteoarthritis [Unknown]
  - Marrow hyperplasia [Unknown]
  - Cerebral atrophy [Unknown]
  - Pleural fibrosis [Unknown]
  - Back pain [Recovered/Resolved]
  - Abdominal discomfort [Unknown]
  - Blood triglycerides increased [Unknown]
  - Conjunctivitis [Unknown]
  - Neuropathy peripheral [Unknown]
  - Eustachian tube dysfunction [Unknown]
  - Cerumen impaction [Unknown]
  - Hypoacusis [Unknown]
  - Osteopenia [Unknown]
  - Cyst [Unknown]
  - Ear pain [Unknown]
  - Headache [Unknown]
  - Palpitations [Recovering/Resolving]
  - Alanine aminotransferase increased [Unknown]
  - Hypertension [Unknown]
  - Hyperglycaemia [Unknown]
  - Glycosuria [Unknown]
  - Rhinitis allergic [Unknown]
  - Cough [Unknown]
  - Pain in extremity [Unknown]
  - Ear discomfort [Unknown]
  - Sinusitis [Unknown]
  - Dysuria [Unknown]
  - Abdominal pain [Unknown]
  - Diarrhoea [Unknown]
  - Musculoskeletal chest pain [Unknown]
  - Anaemia [Unknown]
  - Anxiety [Unknown]
  - Weight decreased [Unknown]
  - Constipation [Unknown]
  - Nausea [Unknown]
  - Vomiting [Unknown]
  - Proteinuria [Unknown]
  - Hypogammaglobulinaemia [Unknown]
  - Fungal infection [Unknown]
  - Bacterial infection [Unknown]
  - Conjunctival haemorrhage [Unknown]
  - Mucosal inflammation [Recovering/Resolving]
  - Enteritis [Unknown]
  - Lipodystrophy acquired [Unknown]
  - Infected bites [Unknown]
  - Pancytopenia [Unknown]
  - Osteoporosis [Unknown]
  - Vitamin D deficiency [Unknown]
  - Osteoarthritis [Unknown]
  - QRS axis abnormal [Unknown]
  - Pharyngeal ulceration [Unknown]
  - Plasma cell myeloma [Unknown]
  - Malignant neoplasm progression [Unknown]
